FAERS Safety Report 5054763-5 (Version None)
Quarter: 2006Q3

REPORT INFORMATION
  Report Type: 
  Country: None (occurrence: None)
  Receive Date: 20060719
  Receipt Date: 20060710
  Transmission Date: 20061208
  Serious: Yes (Hospitalization)
  Sender: FDA-Public Use
  Company Number: FR-AVENTIS-200613822EU

PATIENT
  Age: 68 Year
  Sex: Male
  Weight: 58 kg

DRUGS (4)
  1. NATRIX [Suspect]
     Indication: HYPERTENSION
     Route: 048
     Dates: start: 20060106, end: 20060119
  2. NORVASC [Concomitant]
     Dates: start: 20051001, end: 20060119
  3. TENORMIN [Concomitant]
     Dates: start: 20051001, end: 20060119
  4. BLOPRESS [Concomitant]
     Dates: start: 20051121, end: 20060119

REACTIONS (9)
  - BACK PAIN [None]
  - BLOOD CHLORIDE DECREASED [None]
  - BLOOD POTASSIUM DECREASED [None]
  - CONVULSION [None]
  - DECEREBRATION [None]
  - GLASGOW COMA SCALE ABNORMAL [None]
  - HYPONATRAEMIA [None]
  - RHABDOMYOLYSIS [None]
  - URINARY TRACT INFECTION [None]
